FAERS Safety Report 5743509-0 (Version None)
Quarter: 2008Q2

REPORT INFORMATION
  Report Type: 
  Country: None (occurrence: None)
  Receive Date: 20080519
  Receipt Date: 20080519
  Transmission Date: 20081010
  Serious: No
  Sender: FDA-Public Use
  Company Number: None

PATIENT
  Age: 22 Year
  Sex: Female
  Weight: 58.9676 kg

DRUGS (1)
  1. DIGITEK 125MCG CVS PHARMACY [Suspect]
     Indication: TRANSPOSITION OF THE GREAT VESSELS
     Dosage: 125MCG ONCE A DAY PO   A FEW DAYS
     Route: 048
     Dates: start: 20080125, end: 20080130

REACTIONS (8)
  - ANOREXIA [None]
  - ASTHENIA [None]
  - DIZZINESS [None]
  - NAUSEA [None]
  - NIGHT BLINDNESS [None]
  - ORAL INTAKE REDUCED [None]
  - VISION BLURRED [None]
  - VISUAL ACUITY REDUCED [None]
